FAERS Safety Report 5870419-0 (Version None)
Quarter: 2008Q3

REPORT INFORMATION
  Report Type: 
  Country: None (occurrence: None)
  Receive Date: 20080904
  Receipt Date: 20080418
  Transmission Date: 20090109
  Serious: No
  Sender: FDA-Public Use
  Company Number: US-BRISTOL-MYERS SQUIBB COMPANY-14156772

PATIENT
  Age: 53 Year
  Sex: Female
  Weight: 161 kg

DRUGS (9)
  1. DEFINITY [Suspect]
     Indication: ULTRASOUND SCAN
     Dates: start: 20080418, end: 20080418
  2. BUDESONIDE [Concomitant]
  3. ZOCOR [Concomitant]
  4. CARVEDILOL [Concomitant]
  5. LEVOXYL [Concomitant]
  6. PLAVIX [Concomitant]
  7. LASIX [Concomitant]
  8. RELAFEN [Concomitant]
  9. XOPENEX [Concomitant]

REACTIONS (1)
  - BACK PAIN [None]
